FAERS Safety Report 20256849 (Version 1)
Quarter: 2021Q4

REPORT INFORMATION
  Report Type: Spontaneous
  Country: US (occurrence: None)
  Receive Date: 20211229
  Receipt Date: 20211229
  Transmission Date: 20220303
  Serious: Yes (Disabling)
  Sender: FDA-Public Use
  Company Number: None

PATIENT
  Age: 43 Year
  Sex: Female
  Weight: 99 kg

DRUGS (1)
  1. LIDOCAINE [Suspect]
     Active Substance: LIDOCAINE
     Indication: Tooth extraction
     Dates: start: 20211217, end: 20211217

REACTIONS (2)
  - Neck pain [None]
  - Musculoskeletal stiffness [None]

NARRATIVE: CASE EVENT DATE: 20211219
